FAERS Safety Report 8555195-5 (Version None)
Quarter: 2012Q3

REPORT INFORMATION
  Report Type: 
  Country: None (occurrence: None)
  Receive Date: 20120731
  Receipt Date: 20120725
  Transmission Date: 20120928
  Serious: Yes (Other)
  Sender: FDA-Public Use
  Company Number: US-RB-039622-12

PATIENT
  Age: 26 Year
  Sex: Female

DRUGS (8)
  1. ZOLOFT [Concomitant]
     Indication: POSTPARTUM DEPRESSION
     Route: 065
     Dates: start: 20111101
  2. MULTI-VITAMINS [Concomitant]
     Indication: PREGNANCY
     Dosage: UNKNOWN DOSAGE DETAILS
     Route: 065
     Dates: start: 20110301, end: 20111224
  3. BIOTIN [Concomitant]
     Indication: MEDICAL DIET
     Route: 065
     Dates: start: 20110301
  4. BUPRENORPHINE [Suspect]
     Indication: DRUG DEPENDENCE
     Route: 060
     Dates: start: 20100101, end: 20111101
  5. PITOCIN [Suspect]
     Indication: INDUCED LABOUR
     Dosage: UNKNOWN DOSAGE DETAILS
     Route: 065
     Dates: start: 20111102, end: 20111102
  6. BUPRENORPHINE [Suspect]
     Route: 060
     Dates: start: 20111101, end: 20111101
  7. BUPRENORPHINE [Suspect]
     Route: 060
     Dates: start: 20111101
  8. FISH OIL [Concomitant]
     Indication: MEDICAL DIET
     Dosage: UNKNOWN DOSAGE DETAILS
     Route: 065
     Dates: start: 20110301, end: 20111224

REACTIONS (7)
  - PROCEDURAL PAIN [None]
  - FOETAL GROWTH RESTRICTION [None]
  - HYPERTENSION [None]
  - DRUG WITHDRAWAL SYNDROME [None]
  - MATERNAL EXPOSURE DURING PREGNANCY [None]
  - POSTPARTUM DEPRESSION [None]
  - FOETAL HEART RATE DECREASED [None]
